FAERS Safety Report 4681836-9 (Version None)
Quarter: 2005Q2

REPORT INFORMATION
  Report Type: 
  Country: None (occurrence: None)
  Receive Date: 20050602
  Receipt Date: 20050524
  Transmission Date: 20051028
  Serious: Yes (Hospitalization, Other)
  Sender: FDA-Public Use
  Company Number: 2005059239

PATIENT
  Age: 82 Year
  Sex: Male
  Weight: 90 kg

DRUGS (23)
  1. LINEZOLID SOLUTION, STERILE (LINEZOLID) [Suspect]
     Indication: INFECTION
     Dosage: INTRAVENOUS
     Route: 042
     Dates: start: 20050401, end: 20050401
  2. LINEZOLID SOLUTION, STERILE (LINEZOLID) [Suspect]
     Indication: WOUND DEHISCENCE
     Dosage: INTRAVENOUS
     Route: 042
     Dates: start: 20050401, end: 20050401
  3. DOPAMINE (DOPAMINE) [Concomitant]
  4. OMEPRAZOLE [Concomitant]
  5. HYDROCORTISONE [Concomitant]
  6. IMIPENEM (IMIPENEM) [Concomitant]
  7. RANITIDINE HCL [Concomitant]
  8. BEMIPARINA (ALL OTHER THERAPEUTIC PRODUCTS) [Concomitant]
  9. PHYTONADIONE [Concomitant]
  10. ALBUMIN (HUMAN) [Concomitant]
  11. ADRENALIN (EPINEPHRINE) [Concomitant]
  12. MORPHINE [Concomitant]
  13. REMIFENTANIL (REMIFENTANIL) [Concomitant]
  14. MIDAZOLAM HCL [Concomitant]
  15. DOBUTAMINE (DOBUTAMINE) [Concomitant]
  16. CISATRACURIUM (CISATRACURIUM) [Concomitant]
  17. ETOMIDATE (ETOMIDATE [Concomitant]
  18. EPHEDRIN (EPHEDRIN) [Concomitant]
  19. PROPOFOL [Concomitant]
  20. AMIODARONE HCL [Concomitant]
  21. FUROSEMIDE [Concomitant]
  22. ACETAMINOPHEN [Concomitant]
  23. INSULIN [Concomitant]

REACTIONS (2)
  - METABOLIC ACIDOSIS [None]
  - THROMBOCYTOPENIA [None]
